FAERS Safety Report 10028373 (Version 4)
Quarter: 2014Q4

REPORT INFORMATION
  Report Type: Report from Study
  Country: NL (occurrence: NL)
  Receive Date: 20140321
  Receipt Date: 20141013
  Transmission Date: 20150528
  Serious: Yes (Other)
  Sender: FDA-Public Use
  Company Number: NL-ABBVIE-14P-114-1211773-00

PATIENT
  Age: 45 Year
  Sex: Male
  Weight: 115 kg

DRUGS (19)
  1. DICLOFENAC [Concomitant]
     Active Substance: DICLOFENAC
     Indication: ARTHRALGIA
  2. PREGABALIN. [Concomitant]
     Active Substance: PREGABALIN
     Indication: ARTHRALGIA
     Dosage: 2-4 TIMES/DAY
  3. CLOPIDOGREL [Concomitant]
     Active Substance: CLOPIDOGREL BISULFATE
     Indication: PRODUCT USED FOR UNKNOWN INDICATION
  4. ATORVASTATIN [Concomitant]
     Active Substance: ATORVASTATIN
     Indication: HYPERCHOLESTEROLAEMIA
  5. AMIODARONE [Concomitant]
     Active Substance: AMIODARONE
     Indication: HYPERTENSION
     Dates: end: 2013
  6. TRAMADOL [Concomitant]
     Active Substance: TRAMADOL
     Indication: ARTHRALGIA
  7. AMIODARONE [Concomitant]
     Active Substance: AMIODARONE
     Indication: VENTRICULAR EXTRASYSTOLES
  8. SIMVASTATIN. [Concomitant]
     Active Substance: SIMVASTATIN
     Indication: HYPERCHOLESTEROLAEMIA
     Dates: end: 2014
  9. HUMIRA [Suspect]
     Active Substance: ADALIMUMAB
     Route: 058
     Dates: start: 20140702
  10. TRAMADOL [Concomitant]
     Active Substance: TRAMADOL
     Indication: ARTHRALGIA
  11. PANTOZOL [Concomitant]
     Active Substance: PANTOPRAZOLE SODIUM
     Indication: PRODUCT USED FOR UNKNOWN INDICATION
  12. HUMIRA [Suspect]
     Active Substance: ADALIMUMAB
     Indication: PSORIASIS
     Route: 058
     Dates: start: 20100224, end: 20140609
  13. OMEPRAZOLE. [Concomitant]
     Active Substance: OMEPRAZOLE
     Indication: PROPHYLAXIS
  14. PREGABALIN. [Concomitant]
     Active Substance: PREGABALIN
     Indication: ARTHRALGIA
  15. PERINDOPRILUM-TERT-BUTYLAMINUM [Concomitant]
     Indication: HYPERTENSION
  16. DICLOFENAC [Concomitant]
     Active Substance: DICLOFENAC
     Indication: ARTHRALGIA
     Dosage: TID OR BID
  17. VERAPAMIL [Concomitant]
     Active Substance: VERAPAMIL HYDROCHLORIDE
     Indication: HYPERTENSION
     Dates: end: 2013
  18. VERAPAMIL [Concomitant]
     Active Substance: VERAPAMIL HYDROCHLORIDE
     Indication: VENTRICULAR EXTRASYSTOLES
  19. GLICLAZIDE [Concomitant]
     Active Substance: GLICLAZIDE
     Indication: DIABETES MELLITUS

REACTIONS (1)
  - Ventricular extrasystoles [Not Recovered/Not Resolved]

NARRATIVE: CASE EVENT DATE: 20130801
